FAERS Safety Report 6909523-4 (Version None)
Quarter: 2010Q3

REPORT INFORMATION
  Report Type: 
  Country: None (occurrence: None)
  Receive Date: 20100805
  Receipt Date: 20100729
  Transmission Date: 20110219
  Serious: Yes (Death, Hospitalization)
  Sender: FDA-Public Use
  Company Number: US-BAXTER-2010BH020222

PATIENT
  Sex: Female

DRUGS (1)
  1. DIANEAL [Suspect]
     Indication: PERITONEAL DIALYSIS
     Route: 033
     Dates: start: 20100101, end: 20100101

REACTIONS (5)
  - BONE NEOPLASM MALIGNANT [None]
  - DYSPNOEA [None]
  - ERUCTATION [None]
  - FLATULENCE [None]
  - PNEUMONIA [None]
